FAERS Safety Report 13240346 (Version 2)
Quarter: 2017Q1

REPORT INFORMATION
  Report Type: Spontaneous
  Country: DE (occurrence: DE)
  Receive Date: 20170216
  Receipt Date: 20170224
  Transmission Date: 20170428
  Serious: Yes (Hospitalization)
  Sender: FDA-Public Use
  Company Number: DE-JNJFOC-20170214006

PATIENT
  Age: 56 Year
  Sex: Female

DRUGS (1)
  1. SIMPONI [Suspect]
     Active Substance: GOLIMUMAB
     Indication: COLITIS ULCERATIVE
     Route: 058
     Dates: start: 201507

REACTIONS (4)
  - Sepsis [Unknown]
  - Pelvic abscess [Unknown]
  - Colitis ulcerative [Unknown]
  - Superinfection [Unknown]

NARRATIVE: CASE EVENT DATE: 201508
